FAERS Safety Report 7625837-7 (Version None)
Quarter: 2011Q3

REPORT INFORMATION
  Report Type: 
  Country: None (occurrence: None)
  Receive Date: 20110721
  Receipt Date: 20110713
  Transmission Date: 20111222
  Serious: Yes (Congenital Anomaly)
  Sender: FDA-Public Use
  Company Number: US-PFIZER INC-2011159904

PATIENT

DRUGS (3)
  1. EFFEXOR [Suspect]
     Route: 064
  2. SERTRALINE HYDROCHLORIDE [Suspect]
     Dosage: 50 MG, 1X/DAY
     Route: 064
     Dates: start: 20070701
  3. ZOLOFT [Suspect]
     Dosage: 25 MG, 1X/DAY
     Route: 064
     Dates: start: 20060901

REACTIONS (3)
  - MATERNAL EXPOSURE DURING PREGNANCY [None]
  - CONGENITAL ANOMALY [None]
  - MATERNAL DRUGS AFFECTING FOETUS [None]
